FAERS Safety Report 17187848 (Version 5)
Quarter: 2022Q2

REPORT INFORMATION
  Report Type: Spontaneous
  Country: IT (occurrence: IT)
  Receive Date: 20191221
  Receipt Date: 20220520
  Transmission Date: 20220721
  Serious: Yes (Hospitalization, Other)
  Sender: FDA-Public Use
  Company Number: IT-CHEPLA-C20193296

PATIENT
  Age: 55 Year
  Sex: Female

DRUGS (24)
  1. CIPROFLOXACIN [Suspect]
     Active Substance: CIPROFLOXACIN
     Indication: Device related infection
     Dosage: UNK
     Route: 042
  2. CIPROFLOXACIN [Suspect]
     Active Substance: CIPROFLOXACIN
     Indication: Bacterial infection
     Dosage: UNK
     Route: 065
     Dates: start: 2017, end: 2017
  3. DOXORUBICIN [Suspect]
     Active Substance: DOXORUBICIN
     Indication: Metastasis
     Dosage: UNK, CYCLICAL
     Route: 065
     Dates: start: 201703
  4. DOXORUBICIN [Suspect]
     Active Substance: DOXORUBICIN
     Indication: Metastases to bone
  5. DOXORUBICIN [Suspect]
     Active Substance: DOXORUBICIN
     Indication: Metastases to liver
  6. DOXORUBICIN [Suspect]
     Active Substance: DOXORUBICIN
     Indication: Adrenocortical carcinoma
  7. DOXORUBICIN [Suspect]
     Active Substance: DOXORUBICIN
     Indication: Metastases to lung
  8. CISPLATIN [Suspect]
     Active Substance: CISPLATIN
     Indication: Metastasis
     Dosage: UNK, CYCLICAL
     Route: 065
     Dates: start: 201703
  9. CISPLATIN [Suspect]
     Active Substance: CISPLATIN
     Indication: Metastases to bone
  10. CISPLATIN [Suspect]
     Active Substance: CISPLATIN
     Indication: Adrenocortical carcinoma
  11. CISPLATIN [Suspect]
     Active Substance: CISPLATIN
     Indication: Metastases to lung
  12. CISPLATIN [Suspect]
     Active Substance: CISPLATIN
     Indication: Metastases to liver
  13. ETOPOSIDE [Suspect]
     Active Substance: ETOPOSIDE
     Indication: Metastasis
     Dosage: UNK
     Route: 065
     Dates: start: 201703
  14. ETOPOSIDE [Suspect]
     Active Substance: ETOPOSIDE
     Indication: Metastases to lung
  15. ETOPOSIDE [Suspect]
     Active Substance: ETOPOSIDE
     Indication: Metastases to liver
  16. ETOPOSIDE [Suspect]
     Active Substance: ETOPOSIDE
     Indication: Metastases to bone
  17. ETOPOSIDE [Suspect]
     Active Substance: ETOPOSIDE
     Indication: Adrenocortical carcinoma
  18. MITOTANE [Suspect]
     Active Substance: MITOTANE
     Indication: Adrenocortical carcinoma
     Dosage: UNK, CYCLICAL
     Route: 065
     Dates: start: 201701
  19. MITOTANE [Suspect]
     Active Substance: MITOTANE
     Indication: Metastases to lung
     Dosage: UNK, CYCLICAL
     Route: 065
     Dates: start: 201703
  20. MITOTANE [Suspect]
     Active Substance: MITOTANE
     Indication: Metastases to bone
  21. MITOTANE [Suspect]
     Active Substance: MITOTANE
     Indication: Metastases to liver
  22. CEFTRIAXONE [Concomitant]
     Active Substance: CEFTRIAXONE
     Indication: Infection
     Dosage: UNK
     Route: 042
     Dates: start: 201704
  23. CEFTRIAXONE [Concomitant]
     Active Substance: CEFTRIAXONE
     Indication: Pyrexia
  24. LEVOFLOXACIN [Concomitant]
     Active Substance: LEVOFLOXACIN
     Indication: Device related infection
     Dosage: UNK
     Route: 042

REACTIONS (4)
  - Pyrexia [Recovered/Resolved]
  - Device related infection [Recovered/Resolved]
  - Infusion site reaction [Recovered/Resolved]
  - Bacteraemia [Recovered/Resolved]

NARRATIVE: CASE EVENT DATE: 20170101
